FAERS Safety Report 13465164 (Version 1)
Quarter: 2017Q2

REPORT INFORMATION
  Report Type: Spontaneous
  Country: GB (occurrence: GB)
  Receive Date: 20170421
  Receipt Date: 20170421
  Transmission Date: 20170830
  Serious: Yes (Hospitalization)
  Sender: FDA-Public Use
  Company Number: GB-TORRENT-00015182

PATIENT
  Age: 78 Year
  Sex: Female
  Weight: 84 kg

DRUGS (7)
  1. LANSOPRAZOLE. [Concomitant]
     Active Substance: LANSOPRAZOLE
  2. COLECALCIFEROL [Concomitant]
     Active Substance: CHOLECALCIFEROL
  3. ALENDRONIC ACID [Concomitant]
     Active Substance: ALENDRONIC ACID
  4. SOLIFENACIN [Concomitant]
     Active Substance: SOLIFENACIN
  5. PIOGLITAZONE. [Suspect]
     Active Substance: PIOGLITAZONE
  6. GLIPIZIDE. [Concomitant]
     Active Substance: GLIPIZIDE
  7. OLANZAPINE. [Concomitant]
     Active Substance: OLANZAPINE

REACTIONS (2)
  - Periprosthetic fracture [Recovered/Resolved with Sequelae]
  - Femoral neck fracture [Unknown]

NARRATIVE: CASE EVENT DATE: 201701
